FAERS Safety Report 12281170 (Version 1)
Quarter: 2016Q2

REPORT INFORMATION
  Report Type: Spontaneous
  Country: US (occurrence: US)
  Receive Date: 20160419
  Receipt Date: 20160419
  Transmission Date: 20160815
  Serious: No
  Sender: FDA-Public Use
  Company Number: US-PFIZER INC-2016213213

PATIENT
  Age: 91 Year
  Sex: Male
  Weight: 86 kg

DRUGS (1)
  1. ADVIL [Suspect]
     Active Substance: IBUPROFEN
     Dosage: 2 DF 2X/DAY ORALLY; 200 MG; SOMEWHERE AROUND 9 AM AND 11 PM
     Route: 048
     Dates: start: 20160405, end: 20160412

REACTIONS (1)
  - Chromaturia [Not Recovered/Not Resolved]

NARRATIVE: CASE EVENT DATE: 20160409
